FAERS Safety Report 8163432-4 (Version None)
Quarter: 2012Q1

REPORT INFORMATION
  Report Type: 
  Country: None (occurrence: None)
  Receive Date: 20120224
  Receipt Date: 20120223
  Transmission Date: 20120608
  Serious: Yes (Death, Disabling, Other)
  Sender: FDA-Public Use
  Company Number: US-B.I. PHARMACEUTICALS,INC./RIDGEFIELD-2012-BP-02248BP

PATIENT
  Sex: Male
  Weight: 82.3 kg

DRUGS (12)
  1. SPIRIVA [Suspect]
     Indication: COUGH
  2. VITAMIN B COMPLEX CAP [Concomitant]
     Indication: SUPPLEMENTATION THERAPY
  3. ALBUTEROL [Concomitant]
     Indication: BRONCHITIS
  4. LASIX [Concomitant]
     Indication: CARDIAC DISORDER
  5. FLOMAX [Concomitant]
     Indication: PROSTATIC DISORDER
     Route: 048
  6. VITAMIN D [Concomitant]
     Indication: SUPPLEMENTATION THERAPY
  7. SPIRIVA [Suspect]
     Indication: CHRONIC OBSTRUCTIVE PULMONARY DISEASE
     Dosage: 18 MCG
     Route: 055
     Dates: start: 20040901, end: 20120204
  8. ALBUTEROL [Concomitant]
     Indication: COUGH
  9. SPIRIVA [Suspect]
     Indication: BRONCHITIS
  10. SINGULAIR [Concomitant]
     Dosage: 10 MG
     Route: 048
     Dates: start: 20030319, end: 20060405
  11. CARDIZEM [Concomitant]
     Indication: CARDIAC DISORDER
     Route: 048
  12. ALBUTEROL [Concomitant]
     Indication: CHRONIC OBSTRUCTIVE PULMONARY DISEASE
     Route: 055

REACTIONS (3)
  - DEATH [None]
  - CHRONIC OBSTRUCTIVE PULMONARY DISEASE [None]
  - BRONCHITIS [None]
